FAERS Safety Report 6516437-0 (Version None)
Quarter: 2009Q4

REPORT INFORMATION
  Report Type: 
  Country: None (occurrence: None)
  Receive Date: 20091223
  Receipt Date: 20091222
  Transmission Date: 20100525
  Serious: Yes (Hospitalization)
  Sender: FDA-Public Use
  Company Number: D0065688A

PATIENT
  Age: 6 Year
  Sex: Male

DRUGS (2)
  1. SULTANOL [Suspect]
     Route: 055
  2. FLUTIDE [Suspect]
     Route: 055

REACTIONS (5)
  - BRONCHITIS [None]
  - DRUG INEFFECTIVE [None]
  - HYPERSENSITIVITY [None]
  - INFECTION [None]
  - STRESS [None]
